FAERS Safety Report 5122957-6 (Version None)
Quarter: 2006Q4

REPORT INFORMATION
  Report Type: 
  Country: None (occurrence: None)
  Receive Date: 20061005
  Receipt Date: 20060928
  Transmission Date: 20070319
  Serious: Yes (Other)
  Sender: FDA-Public Use
  Company Number: 25818

PATIENT
  Age: 39 Year
  Sex: Female
  Weight: 117.9352 kg

DRUGS (4)
  1. NIASPAN [Suspect]
     Indication: LIPIDS INCREASED
     Dosage: 1000 MG QHS PO
     Route: 048
     Dates: start: 20060927
  2. CRESTOR [Concomitant]
  3. HYDROCHLOROTHIAZIDE [Concomitant]
  4. ACTONEL [Concomitant]

REACTIONS (5)
  - DIZZINESS [None]
  - DYSPNOEA [None]
  - INCORRECT DOSE ADMINISTERED [None]
  - MEDICATION ERROR [None]
  - PRURITUS [None]
